APPROVED DRUG PRODUCT: FENTANYL CITRATE
Active Ingredient: FENTANYL CITRATE
Strength: EQ 2.5MG BASE/50ML (EQ 0.05MG BASE/ML) **Federal Register determination that product was not discontinued or withdrawn for safety or effectiveness reasons**
Dosage Form/Route: SOLUTION;INTRAVENOUS
Application: N215870 | Product #001
Applicant: EXELA PHARMA SCIENCES LLC
Approved: Feb 8, 2023 | RLD: Yes | RS: No | Type: DISCN